FAERS Safety Report 9060337 (Version 2)
Quarter: 2013Q1

REPORT INFORMATION
  Report Type: Spontaneous
  Country: JP (occurrence: JP)
  Receive Date: 20130212
  Receipt Date: 20130312
  Transmission Date: 20140127
  Serious: Yes (Other)
  Sender: FDA-Public Use
  Company Number: JP-ROCHE-1190375

PATIENT
  Sex: Female

DRUGS (7)
  1. MIRCERA [Suspect]
     Indication: NEPHROGENIC ANAEMIA
     Route: 058
     Dates: start: 20120530, end: 20120606
  2. MIRCERA [Suspect]
     Route: 058
     Dates: start: 20120718, end: 20130123
  3. ADALAT [Concomitant]
     Indication: HYPERTENSION
     Route: 048
     Dates: start: 20120530
  4. ARGAMATE [Concomitant]
     Indication: HYPERKALAEMIA
     Route: 048
     Dates: start: 20120530
  5. LAXOBERON [Concomitant]
     Indication: CONSTIPATION
     Route: 048
     Dates: start: 20120530
  6. TOUGHMAC E [Concomitant]
     Indication: DYSPEPSIA
     Route: 048
     Dates: start: 20120530
  7. RHYTHMY [Concomitant]
     Indication: INSOMNIA
     Dosage: FOR TON AT SLEEP LOSS
     Route: 048
     Dates: start: 20120530

REACTIONS (1)
  - Drug eruption [Recovering/Resolving]
